FAERS Safety Report 4424164-9 (Version None)
Quarter: 2004Q3

REPORT INFORMATION
  Report Type: 
  Country: None (occurrence: None)
  Receive Date: 20040715
  Receipt Date: 20040301
  Transmission Date: 20050211
  Serious: Yes (Hospitalization)
  Sender: FDA-Public Use
  Company Number: 2004201481US

PATIENT
  Age: 87 Year
  Sex: Male

DRUGS (2)
  1. CELEBREX [Suspect]
     Indication: NITRATE COMPOUND THERAPY
     Dosage: 200 MG, QD, ORAL
     Route: 048
     Dates: end: 20040101
  2. NITROPATCH [Concomitant]

REACTIONS (1)
  - PNEUMONIA [None]
